FAERS Safety Report 22272641 (Version 1)
Quarter: 2023Q2

REPORT INFORMATION
  Report Type: Report from Study
  Country: KR (occurrence: KR)
  Receive Date: 20230502
  Receipt Date: 20230502
  Transmission Date: 20230721
  Serious: Yes (Death, Hospitalization, Other)
  Sender: FDA-Public Use
  Company Number: KR-CELLTRION INC.-2023KR007706

PATIENT

DRUGS (9)
  1. HERZUMA [Suspect]
     Active Substance: TRASTUZUMAB-PKRB
     Indication: Breast cancer
     Dosage: 410.4 MG, CYCLE 1 DAY 1, EVERY 3 WEEKS
     Route: 042
     Dates: start: 20230407, end: 20230407
  2. ABEMACICLIB [Suspect]
     Active Substance: ABEMACICLIB
     Indication: Breast cancer
     Dosage: UNK UNK, BID
     Route: 048
     Dates: start: 20230407, end: 20230409
  3. LOPERAMIDE [Concomitant]
     Active Substance: LOPERAMIDE
     Indication: Prophylaxis against diarrhoea
     Dosage: 4 MG, PRN
     Route: 048
     Dates: start: 20230404, end: 20230409
  4. MACPERAN [METOCLOPRAMIDE HYDROCHLORIDE] [Concomitant]
     Indication: Prophylaxis of nausea and vomiting
     Dosage: 10 MG, PRN
     Route: 048
     Dates: start: 20230404, end: 20230409
  5. ACETAMINOPHEN [Concomitant]
     Active Substance: ACETAMINOPHEN
     Indication: Prophylaxis
     Dosage: 650 MG, PRN
     Route: 048
     Dates: start: 20230404, end: 20230409
  6. MOROXACIN [Concomitant]
     Indication: Cough
     Dosage: 400 MG, TID
     Route: 048
     Dates: start: 20230404, end: 20230409
  7. MOROXACIN [Concomitant]
     Indication: Dyspnoea
  8. MUCOSTA SR [Concomitant]
     Indication: Cough
     Dosage: 150 MG, BID
     Route: 048
     Dates: start: 20230404, end: 20230409
  9. MUCOSTA SR [Concomitant]
     Indication: Dyspnoea

REACTIONS (2)
  - Pneumonia [Fatal]
  - Breast cancer [Fatal]

NARRATIVE: CASE EVENT DATE: 20180601
